FAERS Safety Report 8886882 (Version 3)
Quarter: 2013Q1

REPORT INFORMATION
  Report Type: Report from Study
  Country: US (occurrence: US)
  Receive Date: 20121105
  Receipt Date: 20130301
  Transmission Date: 20140127
  Serious: Yes (Hospitalization, Other)
  Sender: FDA-Public Use
  Company Number: US-PURDUE-USA-2012-0095227

PATIENT
  Sex: Male

DRUGS (2)
  1. DILAUDID HP [Suspect]
     Indication: PAIN
     Dosage: UNKNOWN
  2. CLONIDINE [Suspect]
     Indication: PRODUCT USED FOR UNKNOWN INDICATION
     Dosage: UNKNOWN

REACTIONS (5)
  - Drug dependence [Unknown]
  - Hospitalisation [Unknown]
  - Limb injury [Unknown]
  - Pain [Unknown]
  - Activities of daily living impaired [Unknown]
